FAERS Safety Report 23846065 (Version 3)
Quarter: 2024Q2

REPORT INFORMATION
  Report Type: Other
  Country: US (occurrence: US)
  Receive Date: 20240512
  Receipt Date: 20240512
  Transmission Date: 20240715
  Serious: No
  Sender: FDA-Public Use
  Company Number: US-TRAVERE-2024TVT00348

PATIENT
  Age: 44 Year
  Sex: Male

DRUGS (3)
  1. FILSPARI [Suspect]
     Active Substance: SPARSENTAN
     Indication: IgA nephropathy
     Dosage: ONE 200 MG TABLET ONCE DAILY ON DAYS 1 THROUGH 14, THEN TAKE TWO 200 MG TABLETS ONCE DAILY ON DAYS 1
     Route: 048
     Dates: start: 20240330, end: 202404
  2. JARDIANCE [Concomitant]
     Active Substance: EMPAGLIFLOZIN
  3. DRISDOL [Concomitant]
     Active Substance: ERGOCALCIFEROL

REACTIONS (5)
  - Gout [Recovered/Resolved]
  - Dyspnoea [Unknown]
  - Hyperhidrosis [Unknown]
  - Panic attack [Unknown]
  - Anxiety [Unknown]

NARRATIVE: CASE EVENT DATE: 20240404
